FAERS Safety Report 9330314 (Version 1)
Quarter: 2013Q2

REPORT INFORMATION
  Report Type: Report from Study
  Country: US (occurrence: US)
  Receive Date: 20130605
  Receipt Date: 20130605
  Transmission Date: 20140414
  Serious: Yes (Other)
  Sender: FDA-Public Use
  Company Number: US-ROCHE-1231381

PATIENT
  Age: 71 Year
  Sex: Female
  Weight: 104.42 kg

DRUGS (3)
  1. XELODA [Suspect]
     Route: 048
  2. METHADONE [Concomitant]
     Indication: PAIN
     Route: 048
     Dates: start: 20120901
  3. XELODA [Suspect]
     Indication: BREAST CANCER METASTATIC
     Route: 048
     Dates: start: 20121022, end: 20130111

REACTIONS (9)
  - Skin exfoliation [Recovering/Resolving]
  - Pain in extremity [Recovering/Resolving]
  - Erythema [Recovering/Resolving]
  - Abasia [Recovering/Resolving]
  - Diarrhoea [Recovering/Resolving]
  - Abdominal discomfort [Recovered/Resolved]
  - Dysgeusia [Recovered/Resolved]
  - Red blood cell count decreased [Unknown]
  - Decreased appetite [Recovered/Resolved]
